FAERS Safety Report 5730842-1 (Version None)
Quarter: 2008Q2

REPORT INFORMATION
  Report Type: 
  Country: None (occurrence: None)
  Receive Date: 20080507
  Receipt Date: 20080428
  Transmission Date: 20081010
  Serious: Yes (Other)
  Sender: FDA-Public Use
  Company Number: PL-PFIZER INC-2008036994

PATIENT
  Age: 46 Year
  Sex: Male

DRUGS (5)
  1. ZELDOX (CAPSULES) [Suspect]
  2. HYDROXYZINE [Concomitant]
  3. PRIDINOL [Concomitant]
  4. CLORANXEN [Concomitant]
  5. NOVOLOG MIX 70/30 [Concomitant]

REACTIONS (1)
  - MYOCARDIAL INFARCTION [None]
